FAERS Safety Report 6490530-3 (Version None)
Quarter: 2009Q4

REPORT INFORMATION
  Report Type: 
  Country: None (occurrence: None)
  Receive Date: 20091210
  Receipt Date: 20091210
  Transmission Date: 20100525
  Serious: No
  Sender: FDA-Public Use
  Company Number: None

PATIENT

DRUGS (4)
  1. AMOXICILLIN AND CLAVULANATE POTASSIUM [Suspect]
     Indication: HELICOBACTER INFECTION
     Dosage: 1G, B.I.D.
  2. FURAZOLIDONE CAP [Concomitant]
  3. COLLODIAL BISMUTH SUBCITRATE [Concomitant]
  4. PPI ESOMEPRAZOLE [Concomitant]

REACTIONS (6)
  - ASTHENIA [None]
  - DECREASED APPETITE [None]
  - DYSGEUSIA [None]
  - DYSPEPSIA [None]
  - FAECES DISCOLOURED [None]
  - NAUSEA [None]
